FAERS Safety Report 10890911 (Version 1)
Quarter: 2015Q1

REPORT INFORMATION
  Report Type: Spontaneous
  Country: AU (occurrence: AU)
  Receive Date: 20150305
  Receipt Date: 20150305
  Transmission Date: 20150721
  Serious: Yes (Other)
  Sender: FDA-Public Use
  Company Number: AU-BAYER-2015-033465

PATIENT
  Age: 43 Year
  Sex: Female

DRUGS (1)
  1. MIRENA [Suspect]
     Active Substance: LEVONORGESTREL
     Dosage: 20 MCG/24HR, CONT
     Route: 015
     Dates: start: 20140616

REACTIONS (5)
  - Genital haemorrhage [Not Recovered/Not Resolved]
  - Dysmenorrhoea [None]
  - Gynaecological chlamydia infection [Recovered/Resolved]
  - Hypomenorrhoea [Not Recovered/Not Resolved]
  - Menorrhagia [None]

NARRATIVE: CASE EVENT DATE: 2014
